FAERS Safety Report 7925493-4 (Version None)
Quarter: 2011Q4

REPORT INFORMATION
  Report Type: 
  Country: None (occurrence: None)
  Receive Date: 20111118
  Receipt Date: 20101118
  Transmission Date: 20120403
  Serious: No
  Sender: FDA-Public Use
  Company Number: US-AMGEN-USASP2010005826

PATIENT
  Age: 59 Year
  Sex: Female

DRUGS (2)
  1. ENBREL [Suspect]
     Indication: RHEUMATOID ARTHRITIS
     Dosage: 50 MG, QWK
     Dates: start: 20101114
  2. METHOTREXATE [Concomitant]
     Dosage: 3 MG, QWK
     Dates: start: 20050101

REACTIONS (4)
  - MYALGIA [None]
  - PAIN [None]
  - CHILLS [None]
  - ARTHRALGIA [None]
